FAERS Safety Report 6003249-X (Version None)
Quarter: 2008Q4

REPORT INFORMATION
  Report Type: 
  Country: None (occurrence: None)
  Receive Date: 20081212
  Receipt Date: 20081212
  Transmission Date: 20090506
  Serious: Yes (Disabling)
  Sender: FDA-Public Use
  Company Number: None

PATIENT
  Age: 64 Year
  Sex: Female
  Weight: 120.2032 kg

DRUGS (1)
  1. SEROQUEL [Suspect]
     Indication: BIPOLAR DISORDER
     Dosage: 200 MG AT BEDTIME PO
     Route: 048
     Dates: start: 19990710, end: 20081105

REACTIONS (5)
  - BRAIN INJURY [None]
  - FACIAL SPASM [None]
  - PANCREATITIS [None]
  - TARDIVE DYSKINESIA [None]
  - TREMOR [None]
